FAERS Safety Report 6390085-8 (Version None)
Quarter: 2010Q1

REPORT INFORMATION
  Report Type: 
  Country: None (occurrence: None)
  Receive Date: 20091006
  Receipt Date: 20090925
  Transmission Date: 20100710
  Serious: Yes (Other)
  Sender: FDA-Public Use
  Company Number: US-JNJFOC-20091000157

PATIENT
  Age: 6 Year
  Sex: Female
  Weight: 31.07 kg

DRUGS (9)
  1. CHILDREN'S TYLENOL SUSPENSION [Suspect]
     Route: 048
  2. CHILDREN'S TYLENOL SUSPENSION [Suspect]
     Indication: HEADACHE
     Dosage: FOR 5 DAYS
     Route: 048
  3. ZYRTEC [Concomitant]
     Indication: MULTIPLE ALLERGIES
  4. SINGULAIR [Concomitant]
     Indication: MULTIPLE ALLERGIES
  5. MULTI-VITAMINS [Concomitant]
     Indication: CYSTIC FIBROSIS
  6. CREON [Concomitant]
  7. ALBUTEROL [Concomitant]
     Indication: LUNG DISORDER
  8. FLOVENT [Concomitant]
     Indication: COUGH
  9. ZANTAC [Concomitant]
     Indication: GASTROOESOPHAGEAL REFLUX DISEASE

REACTIONS (3)
  - OXYGEN SATURATION DECREASED [None]
  - PSEUDOMONAS INFECTION [None]
  - TRANSMISSION OF AN INFECTIOUS AGENT VIA A MEDICINAL PRODUCT [None]
